FAERS Safety Report 8130159-4 (Version None)
Quarter: 2012Q1

REPORT INFORMATION
  Report Type: 
  Country: None (occurrence: None)
  Receive Date: 20120210
  Receipt Date: 20120206
  Transmission Date: 20120608
  Serious: Yes (Hospitalization)
  Sender: FDA-Public Use
  Company Number: DE-ABBOTT-11P-062-0729325-00

PATIENT
  Sex: Male

DRUGS (5)
  1. HUMIRA [Suspect]
     Indication: CROHN'S DISEASE
     Route: 058
     Dates: start: 20110324, end: 20110525
  2. IRON [Concomitant]
     Dosage: INJECTION FOR INFUSION
     Dates: start: 20110801
  3. HUMIRA [Suspect]
     Dosage: 40 MG Q 1-2 WEEKS
     Route: 058
  4. HUMIRA [Suspect]
     Route: 058
     Dates: start: 20110526
  5. PREDNISOLONE [Concomitant]
     Indication: PRODUCT USED FOR UNKNOWN INDICATION

REACTIONS (9)
  - GASTROINTESTINAL INFLAMMATION [None]
  - HAEMATOCHEZIA [None]
  - DRUG INEFFECTIVE [None]
  - FEELING ABNORMAL [None]
  - DIARRHOEA HAEMORRHAGIC [None]
  - ARTHRALGIA [None]
  - FATIGUE [None]
  - DIARRHOEA [None]
  - CROHN'S DISEASE [None]
